FAERS Safety Report 9605204 (Version 1)
Quarter: 2013Q4

REPORT INFORMATION
  Report Type: Spontaneous
  Country: AL (occurrence: AL)
  Receive Date: 20131008
  Receipt Date: 20131008
  Transmission Date: 20140711
  Serious: Yes (Other)
  Sender: FDA-Public Use
  Company Number: PHHY2013AL109839

PATIENT
  Age: 64 Year
  Sex: Female

DRUGS (4)
  1. TIMOLOL [Suspect]
     Indication: GLAUCOMA
     Dosage: UNK UKN, BID
     Dates: start: 2004
  2. BRINZOLAMIDE [Suspect]
     Indication: GLAUCOMA
     Dosage: UNK UKN, BID
  3. SALBUTAMOL [Concomitant]
     Indication: ASTHMA
     Dosage: 2 MG/5 ML 100 MG TWO TIMES DAILY,
     Route: 048
  4. SERETIDE [Concomitant]
     Indication: ASTHMA
     Dosage: UNK UKN, BID

REACTIONS (1)
  - Asthma [Recovering/Resolving]
